FAERS Safety Report 17238789 (Version 2)
Quarter: 2020Q4

REPORT INFORMATION
  Report Type: Spontaneous
  Country: JP (occurrence: JP)
  Receive Date: 20200106
  Receipt Date: 20201229
  Transmission Date: 20210113
  Serious: No
  Sender: FDA-Public Use
  Company Number: JP-LUNDBECK-DKLU2061487

PATIENT
  Age: 10 Month
  Sex: Female
  Weight: 8 kg

DRUGS (25)
  1. SABRIL [Suspect]
     Active Substance: VIGABATRIN
     Route: 048
     Dates: start: 20180731, end: 20180804
  2. SODIUM VALPROATE [Concomitant]
     Active Substance: VALPROATE SODIUM
     Indication: INFANTILE SPASMS
     Route: 065
     Dates: start: 20180522
  3. SABRIL [Suspect]
     Active Substance: VIGABATRIN
     Route: 048
     Dates: start: 20180702, end: 20180730
  4. SABRIL [Suspect]
     Active Substance: VIGABATRIN
     Route: 048
     Dates: start: 20180925, end: 20181001
  5. URALYT CHEMIPHAR [Concomitant]
     Indication: INVESTIGATION
  6. SABRIL [Suspect]
     Active Substance: VIGABATRIN
     Route: 048
     Dates: start: 20181009, end: 20181016
  7. LEVETIRACETAM. [Concomitant]
     Active Substance: LEVETIRACETAM
     Indication: AICARDI^S SYNDROME
  8. URALYT CHEMIPHAR [Concomitant]
     Indication: PROPHYLAXIS
     Route: 065
  9. SABRIL [Suspect]
     Active Substance: VIGABATRIN
     Indication: AICARDI^S SYNDROME
     Route: 048
     Dates: start: 20180625, end: 20180701
  10. CLOBAZAM. [Concomitant]
     Active Substance: CLOBAZAM
     Indication: PRODUCT USED FOR UNKNOWN INDICATION
     Route: 065
  11. SODIUM VALPROATE [Concomitant]
     Active Substance: VALPROATE SODIUM
     Indication: AICARDI^S SYNDROME
  12. SABRIL [Suspect]
     Active Substance: VIGABATRIN
     Route: 048
     Dates: start: 20180805, end: 20180811
  13. SABRIL [Suspect]
     Active Substance: VIGABATRIN
     Route: 048
     Dates: start: 20180817, end: 20180820
  14. SABRIL [Suspect]
     Active Substance: VIGABATRIN
     Route: 048
     Dates: start: 20181002, end: 20181008
  15. CARTIN [Concomitant]
     Indication: PROPHYLAXIS
     Route: 065
  16. ALLOPURINOL. [Concomitant]
     Active Substance: ALLOPURINOL
     Indication: PROPHYLAXIS
     Route: 065
  17. ALLOPURINOL. [Concomitant]
     Active Substance: ALLOPURINOL
     Indication: INVESTIGATION
  18. SABRIL [Suspect]
     Active Substance: VIGABATRIN
     Indication: INFANTILE SPASMS
     Route: 048
     Dates: start: 20180614, end: 20180624
  19. SABRIL [Suspect]
     Active Substance: VIGABATRIN
     Route: 048
     Dates: start: 20180904, end: 20180924
  20. BIOTIN [Concomitant]
     Active Substance: BIOTIN
     Indication: INVESTIGATION
  21. CARTIN [Concomitant]
     Indication: INVESTIGATION
  22. SABRIL [Suspect]
     Active Substance: VIGABATRIN
     Route: 048
     Dates: start: 20180812, end: 20180816
  23. SABRIL [Suspect]
     Active Substance: VIGABATRIN
     Route: 048
     Dates: start: 20180821, end: 20180903
  24. LEVETIRACETAM. [Concomitant]
     Active Substance: LEVETIRACETAM
     Indication: INFANTILE SPASMS
     Route: 065
     Dates: end: 20180522
  25. BIOTIN [Concomitant]
     Active Substance: BIOTIN
     Indication: PROPHYLAXIS
     Route: 065

REACTIONS (2)
  - Somnolence [Recovering/Resolving]
  - Therapeutic product effect incomplete [Unknown]

NARRATIVE: CASE EVENT DATE: 201806
